FAERS Safety Report 6868718-9 (Version None)
Quarter: 2010Q3

REPORT INFORMATION
  Report Type: 
  Country: None (occurrence: None)
  Receive Date: 20100722
  Receipt Date: 20080809
  Transmission Date: 20110219
  Serious: No
  Sender: FDA-Public Use
  Company Number: US-PFIZER INC-2008053027

PATIENT
  Sex: Female
  Weight: 56.818 kg

DRUGS (4)
  1. CHANTIX [Suspect]
     Indication: SMOKING CESSATION THERAPY
     Dates: start: 20080616, end: 20080620
  2. SUDAFED 12 HOUR [Concomitant]
  3. BENADRYL [Concomitant]
  4. NORMENSAL [Concomitant]
     Indication: CONTRACEPTION

REACTIONS (5)
  - EUPHORIC MOOD [None]
  - FEELING ABNORMAL [None]
  - MENTAL IMPAIRMENT [None]
  - NAUSEA [None]
  - SOMNOLENCE [None]
